FAERS Safety Report 6137936-X (Version None)
Quarter: 2009Q1

REPORT INFORMATION
  Report Type: 
  Country: None (occurrence: None)
  Receive Date: 20090331
  Receipt Date: 20090319
  Transmission Date: 20090719
  Serious: Yes (Hospitalization, Other)
  Sender: FDA-Public Use
  Company Number: JP-PFIZER INC-2009186959

PATIENT

DRUGS (7)
  1. NORVASC [Suspect]
     Indication: HYPERTENSION
     Dosage: UNK
     Route: 048
  2. CARDENALIN [Suspect]
     Indication: HYPERTENSION
     Dosage: UNK
     Route: 048
  3. NU LOTAN [Concomitant]
     Route: 048
  4. ARTIST [Concomitant]
     Route: 048
  5. ASPIRIN [Concomitant]
     Route: 048
  6. PLAVIX [Concomitant]
     Route: 048
  7. TAKEPRON [Concomitant]
     Route: 048

REACTIONS (1)
  - MYOCARDIAL INFARCTION [None]
